FAERS Safety Report 5710778-2 (Version None)
Quarter: 2008Q2

REPORT INFORMATION
  Report Type: 
  Country: None (occurrence: None)
  Receive Date: 20080415
  Receipt Date: 20080331
  Transmission Date: 20081010
  Serious: Yes (Death)
  Sender: FDA-Public Use
  Company Number: 2008US000653

PATIENT
  Age: 77 Year
  Sex: Female

DRUGS (5)
  1. AMBISOME [Suspect]
     Indication: CANDIDA PNEUMONIA
     Dosage: 100 MG, UID/QD, IV NOS
     Route: 042
     Dates: start: 20080208, end: 20080209
  2. SULPERAZON (CEFOPERAZONE SODIUM) [Concomitant]
  3. CEFTRIAXONE [Concomitant]
  4. KENACORT [Concomitant]
  5. LASIX [Concomitant]

REACTIONS (7)
  - CANDIDIASIS [None]
  - DISEASE PROGRESSION [None]
  - GENERAL PHYSICAL HEALTH DETERIORATION [None]
  - PNEUMONIA [None]
  - RESPIRATORY DEPRESSION [None]
  - RESPIRATORY TRACT INFECTION [None]
  - WHITE BLOOD CELL COUNT INCREASED [None]
